FAERS Safety Report 16398676 (Version 1)
Quarter: 2019Q3

REPORT INFORMATION
  Report Type: Spontaneous
  Country: US (occurrence: US)
  Receive Date: 20190605
  Receipt Date: 20190605
  Transmission Date: 20191004
  Serious: No
  Sender: FDA-Public Use
  Company Number: None

PATIENT
  Age: 59 Year
  Sex: Male
  Weight: 81 kg

DRUGS (1)
  1. BENZONATATE 200MG CAP [Suspect]
     Active Substance: BENZONATATE
     Indication: COUGH
     Dosage: ?          QUANTITY:30 CAPSULE(S);?
     Route: 048
     Dates: start: 20190603, end: 20190604

REACTIONS (2)
  - Choking [None]
  - Cough [None]

NARRATIVE: CASE EVENT DATE: 20190604
